FAERS Safety Report 7275757-5 (Version None)
Quarter: 2011Q1

REPORT INFORMATION
  Report Type: 
  Country: None (occurrence: None)
  Receive Date: 20110204
  Receipt Date: 20110128
  Transmission Date: 20110831
  Serious: Yes (Death)
  Sender: FDA-Public Use
  Company Number: ES-MERCK-1101ESP00051

PATIENT
  Age: 89 Year
  Sex: Female

DRUGS (7)
  1. VALSARTAN [Concomitant]
     Indication: HYPERTENSION
     Route: 048
  2. PRIMAXIN [Suspect]
     Indication: ABDOMINAL ABSCESS
     Route: 042
     Dates: start: 20101001, end: 20101109
  3. BISOPROLOL FUMARATE [Concomitant]
     Indication: HYPERTENSION
     Route: 048
  4. CARBOHYDRATES (UNSPECIFIED) AND FAT (UNSPECIFIED) AND MINERALS (UNSPEC [Concomitant]
     Route: 065
  5. PRIMAXIN [Suspect]
     Indication: NOSOCOMIAL INFECTION
     Route: 042
     Dates: start: 20101001, end: 20101109
  6. FUROSEMIDE [Concomitant]
     Route: 065
  7. DIGOXIN [Concomitant]
     Route: 065

REACTIONS (2)
  - PNEUMONIA ASPIRATION [None]
  - STATUS EPILEPTICUS [None]
